FAERS Safety Report 5000347-4 (Version None)
Quarter: 2006Q2

REPORT INFORMATION
  Report Type: 
  Country: None (occurrence: None)
  Receive Date: 20060511
  Receipt Date: 20051215
  Transmission Date: 20061013
  Serious: Yes (Death, Other)
  Sender: FDA-Public Use
  Company Number: US-MERCK-0512USA02618

PATIENT
  Age: 44 Year
  Sex: Male
  Weight: 108 kg

DRUGS (16)
  1. VIOXX [Suspect]
     Indication: JOINT SPRAIN
     Route: 048
     Dates: start: 20031121, end: 20031227
  2. VIOXX [Suspect]
     Route: 048
     Dates: start: 20020101
  3. TOPROL-XL [Concomitant]
     Route: 065
  4. NIASPAN [Concomitant]
     Route: 065
  5. ASPIRIN [Concomitant]
     Route: 065
  6. GLUCOSAMINE [Concomitant]
     Route: 065
  7. CHONDROITIN [Concomitant]
     Route: 065
  8. VITAMINS (UNSPECIFIED) [Concomitant]
     Route: 065
  9. METAMUCIL [Concomitant]
     Route: 065
  10. LIPITOR [Concomitant]
     Route: 065
  11. CALCIUM (UNSPECIFIED) [Concomitant]
     Route: 065
  12. METHOTREXATE [Concomitant]
     Route: 065
  13. AVAPRO [Concomitant]
     Route: 065
  14. VITAMIN E [Concomitant]
     Route: 065
  15. ZITHROMAX [Concomitant]
     Route: 065
  16. LEUCOVORIN [Concomitant]
     Route: 065

REACTIONS (6)
  - ACUTE MYOCARDIAL INFARCTION [None]
  - CARDIAC ARREST [None]
  - CORONARY ARTERY DISEASE [None]
  - ISCHAEMIA [None]
  - PULMONARY CALCIFICATION [None]
  - PULMONARY CONGESTION [None]
